FAERS Safety Report 19031104 (Version 3)
Quarter: 2021Q2

REPORT INFORMATION
  Report Type: Spontaneous
  Country: IT (occurrence: IT)
  Receive Date: 20210319
  Receipt Date: 20210604
  Transmission Date: 20210717
  Serious: Yes (Life-Threatening, Hospitalization)
  Sender: FDA-Public Use
  Company Number: IT-MYLANLABS-2021M1016633

PATIENT
  Age: 53 Year
  Sex: Female

DRUGS (5)
  1. ZOLPIDEM [Suspect]
     Active Substance: ZOLPIDEM TARTRATE
     Indication: PRODUCT USED FOR UNKNOWN INDICATION
     Dosage: 9000 MILLIGRAM DELIBERATE INGESTION OF 9000 MG OF ZOLPIDEM CONSUMED?
     Route: 048
  2. FLUMAZENIL. [Suspect]
     Active Substance: FLUMAZENIL
     Dosage: 2 MILLIGRAM
     Route: 040
  3. ALPRAZOLAM. [Suspect]
     Active Substance: ALPRAZOLAM
     Indication: PRODUCT USED FOR UNKNOWN INDICATION
     Dosage: UNKNOWN QUANTITY
     Route: 065
  4. FLUMAZENIL. [Suspect]
     Active Substance: FLUMAZENIL
     Indication: TOXICITY TO VARIOUS AGENTS
     Dosage: 1 MILLIGRAM
     Route: 042
  5. NALOXONE [Suspect]
     Active Substance: NALOXONE
     Indication: TOXICITY TO VARIOUS AGENTS
     Dosage: 0.4 MILLIGRAM
     Route: 042

REACTIONS (7)
  - Toxicity to various agents [Recovered/Resolved]
  - Transaminases increased [Recovered/Resolved]
  - Intentional overdose [Recovered/Resolved]
  - Encephalopathy [Recovered/Resolved]
  - Therapy non-responder [Recovered/Resolved]
  - Suicide attempt [Recovered/Resolved]
  - Coma [Recovered/Resolved]
